FAERS Safety Report 5694890-2 (Version None)
Quarter: 2008Q2

REPORT INFORMATION
  Report Type: 
  Country: None (occurrence: None)
  Receive Date: 20080404
  Receipt Date: 20080327
  Transmission Date: 20081010
  Serious: Yes (Other)
  Sender: FDA-Public Use
  Company Number: PHHY2008BR03655

PATIENT
  Age: 89 Year
  Sex: Female
  Weight: 54 kg

DRUGS (6)
  1. EXELON [Suspect]
     Indication: DEMENTIA ALZHEIMER'S TYPE
     Dosage: 9MG/5CM2, 1 PATCH/DAY
     Route: 062
     Dates: start: 20080320
  2. OLANZAPINE [Concomitant]
     Indication: NERVOUSNESS
     Dosage: 1/2 TABLET/DAY
     Route: 060
     Dates: start: 20080320
  3. FLUOXETINE [Suspect]
     Indication: DEPRESSION
     Dosage: 20 MG, 14 DROPS/DAY
     Route: 048
     Dates: start: 20080319
  4. ESOMEPRAZOLE MAGNESIUM [Concomitant]
     Indication: GASTRITIS
     Dosage: 1 TABLET /DAY
     Route: 048
     Dates: start: 20070101
  5. FOLIC ACID [Concomitant]
     Indication: ANAEMIA
     Dosage: 1 TABLET DAILY
     Route: 048
     Dates: start: 20030101
  6. PAMELOR [Suspect]

REACTIONS (6)
  - ABNORMAL BEHAVIOUR [None]
  - DYSKINESIA [None]
  - GAIT DISTURBANCE [None]
  - INSOMNIA [None]
  - OEDEMA PERIPHERAL [None]
  - POSTURE ABNORMAL [None]
